FAERS Safety Report 4790252-0 (Version None)
Quarter: 2005Q3

REPORT INFORMATION
  Report Type: 
  Country: None (occurrence: None)
  Receive Date: 20050914
  Receipt Date: 20041209
  Transmission Date: 20060218
  Serious: Yes (Other)
  Sender: FDA-Public Use
  Company Number: 163-20785-04120308

PATIENT
  Age: 75 Year
  Sex: Male

DRUGS (9)
  1. THALOMID [Suspect]
     Indication: MULTIPLE MYELOMA
     Dosage: 200 MG, DAILY, ORAL
     Route: 048
     Dates: start: 20031001
  2. FUROSEMIDE (FUROSEMIDE) (TABLETS) [Concomitant]
  3. ASPIRIN [Concomitant]
  4. AMIODARONE HCL [Concomitant]
  5. METOPROLOL (METOPROLOL) (TABLETS) [Concomitant]
  6. SIMVASTATIN (SIMVASTATIN) (TABLETS) [Concomitant]
  7. OXYCODONE HCL (OXYCODONE HYDROCHLORIDE) [Concomitant]
  8. PROBENECID (PROBENECID) (TABLETS) [Concomitant]
  9. SENNOSIDES (SENNOSIDE A + B) (TABLETS) [Concomitant]

REACTIONS (9)
  - ARTHRALGIA [None]
  - DEAFNESS [None]
  - DYSPNOEA EXERTIONAL [None]
  - HAEMOGLOBIN DECREASED [None]
  - PARAESTHESIA [None]
  - PNEUMONIA [None]
  - TINNITUS [None]
  - WHITE BLOOD CELL COUNT [None]
  - WHITE BLOOD CELL COUNT DECREASED [None]
